FAERS Safety Report 6551066-4 (Version None)
Quarter: 2010Q1

REPORT INFORMATION
  Report Type: 
  Country: None (occurrence: None)
  Receive Date: 20100122
  Receipt Date: 20100122
  Transmission Date: 20100710
  Serious: Yes (Other)
  Sender: FDA-Public Use
  Company Number: None

PATIENT
  Age: 29 Year
  Sex: Female
  Weight: 65.7716 kg

DRUGS (3)
  1. NUVARING [Suspect]
     Indication: CONTRACEPTION
     Dosage: DELIVERS 0.120MG/0.015 MG DAY EVERY 3 WEEKS VAG
     Route: 067
     Dates: start: 20090301, end: 20100115
  2. LEVAQUIN [Concomitant]
  3. METRONIDAZOLE [Concomitant]

REACTIONS (2)
  - MEDICAL DEVICE COMPLICATION [None]
  - PELVIC INFLAMMATORY DISEASE [None]
